FAERS Safety Report 6191520-0 (Version None)
Quarter: 2009Q2

REPORT INFORMATION
  Report Type: 
  Country: None (occurrence: None)
  Receive Date: 20090513
  Receipt Date: 20090427
  Transmission Date: 20091009
  Serious: Yes (Other)
  Sender: FDA-Public Use
  Company Number: DE-GENENTECH-282645

PATIENT
  Age: 57 Year
  Sex: Female

DRUGS (2)
  1. ACTIVASE [Suspect]
     Indication: THROMBOSIS
     Dosage: UNK
     Route: 013
  2. ABCIXIMAB [Suspect]
     Indication: THROMBOSIS
     Dosage: UNK
     Route: 042

REACTIONS (3)
  - CEREBRAL ARTERY EMBOLISM [None]
  - EMBOLIC CEREBRAL INFARCTION [None]
  - HEMIANOPIA [None]
